FAERS Safety Report 7751734-2 (Version None)
Quarter: 2011Q3

REPORT INFORMATION
  Report Type: 
  Country: None (occurrence: None)
  Receive Date: 20110915
  Receipt Date: 20110906
  Transmission Date: 20111222
  Serious: Yes (Hospitalization)
  Sender: FDA-Public Use
  Company Number: US-BIOGENIDEC-2011BI033757

PATIENT
  Age: 48 Year
  Sex: Male

DRUGS (1)
  1. AVONEX [Suspect]
     Indication: MULTIPLE SCLEROSIS
     Route: 030
     Dates: start: 20110830

REACTIONS (5)
  - SKIN WARM [None]
  - MUSCLE DISORDER [None]
  - URINARY INCONTINENCE [None]
  - MOBILITY DECREASED [None]
  - DEHYDRATION [None]
